FAERS Safety Report 7313802-9 (Version None)
Quarter: 2011Q1

REPORT INFORMATION
  Report Type: 
  Country: None (occurrence: None)
  Receive Date: 20110225
  Receipt Date: 20110223
  Transmission Date: 20110831
  Serious: Yes (Death)
  Sender: FDA-Public Use
  Company Number: SK-PFIZER INC-2011037456

PATIENT
  Age: 68 Year
  Sex: Male
  Weight: 86 kg

DRUGS (1)
  1. SUNITINIB MALATE [Suspect]
     Indication: RENAL CELL CARCINOMA
     Dosage: 50 MG, UNK
     Dates: start: 20091027, end: 20100329

REACTIONS (1)
  - DEATH [None]
